FAERS Safety Report 16234537 (Version 2)
Quarter: 2019Q2

REPORT INFORMATION
  Report Type: Report from Study
  Country: FR (occurrence: FR)
  Receive Date: 20190424
  Receipt Date: 20190509
  Transmission Date: 20190711
  Serious: Yes (Hospitalization)
  Sender: FDA-Public Use
  Company Number: FR-PFIZER INC-2019168458

PATIENT
  Age: 72 Year
  Sex: Male
  Weight: 55 kg

DRUGS (15)
  1. GEMCITABINE HYDROCHLORIDE. [Suspect]
     Active Substance: GEMCITABINE HYDROCHLORIDE
     Dosage: 1640 MG, UNK
     Dates: start: 20190302
  2. MSB0010718C [Suspect]
     Active Substance: AVELUMAB
     Dosage: 640 MG, UNK
     Dates: start: 20190221
  3. MSB0010718C [Suspect]
     Active Substance: AVELUMAB
     Dosage: UNK
  4. CISPLATIN. [Suspect]
     Active Substance: CISPLATIN
     Dosage: 114 MG, UNK
     Dates: start: 20190319
  5. OXYCONTIN [Concomitant]
     Active Substance: OXYCODONE HYDROCHLORIDE
     Indication: PAIN
     Dosage: 30 MG, 2X/DAY
     Dates: start: 20190212
  6. PRIMPERAN [Concomitant]
     Active Substance: METOCLOPRAMIDE HYDROCHLORIDE
     Indication: NAUSEA
     Dosage: UNK UNK, 3X/DAY
  7. GEMCITABINE HYDROCHLORIDE. [Suspect]
     Active Substance: GEMCITABINE HYDROCHLORIDE
     Dosage: 1640 MG, UNK
     Dates: start: 20190221
  8. RAMIPRIL. [Concomitant]
     Active Substance: RAMIPRIL
     Indication: HYPERTENSION
     Dosage: 2.5 MG, 1X/DAY
  9. MSB0010718C [Suspect]
     Active Substance: AVELUMAB
     Dosage: 560 MG, UNK
     Dates: start: 20190319
  10. GEMCITABINE HYDROCHLORIDE. [Suspect]
     Active Substance: GEMCITABINE HYDROCHLORIDE
     Dosage: 1640 MG, UNK
     Dates: start: 20190329
  11. CISPLATIN. [Suspect]
     Active Substance: CISPLATIN
     Dosage: 120 MG, UNK
     Dates: start: 20190221
  12. CISPLATIN. [Suspect]
     Active Substance: CISPLATIN
     Dosage: UNK
  13. OXYNORM [Concomitant]
     Active Substance: OXYCODONE HYDROCHLORIDE
     Indication: PAIN
     Dosage: 10 MG, 6 TIMES/ DAY
     Dates: start: 20190212
  14. GEMCITABINE HYDROCHLORIDE. [Suspect]
     Active Substance: GEMCITABINE HYDROCHLORIDE
     Dosage: 1640 MG, UNK
     Dates: start: 20190319
  15. DAFALGAN [Concomitant]
     Active Substance: ACETAMINOPHEN
     Dosage: UNK
     Dates: start: 201901

REACTIONS (5)
  - Nausea [Not Recovered/Not Resolved]
  - Decreased appetite [Not Recovered/Not Resolved]
  - General physical health deterioration [Not Recovered/Not Resolved]
  - Vomiting [Not Recovered/Not Resolved]
  - Asthenia [Not Recovered/Not Resolved]

NARRATIVE: CASE EVENT DATE: 20190325
